FAERS Safety Report 10207516 (Version 1)
Quarter: 2014Q2

REPORT INFORMATION
  Report Type: Spontaneous
  Country: FR (occurrence: FR)
  Receive Date: 20140530
  Receipt Date: 20140530
  Transmission Date: 20141212
  Serious: Yes (Hospitalization)
  Sender: FDA-Public Use
  Company Number: FR-ASTRAZENECA-2014SE36508

PATIENT
  Sex: 0

DRUGS (3)
  1. BRILIQUE [Suspect]
     Indication: ACUTE CORONARY SYNDROME
     Route: 048
  2. LOSARTAN [Concomitant]
     Indication: ACUTE CORONARY SYNDROME
  3. PROCORALAN [Concomitant]
     Indication: ACUTE CORONARY SYNDROME

REACTIONS (3)
  - Fatigue [Unknown]
  - Anaemia macrocytic [Unknown]
  - Dyspnoea [Unknown]
